FAERS Safety Report 21958109 (Version 3)
Quarter: 2023Q1

REPORT INFORMATION
  Report Type: Spontaneous
  Country: CN (occurrence: CN)
  Receive Date: 20230206
  Receipt Date: 20230217
  Transmission Date: 20230418
  Serious: Yes (Hospitalization, Other)
  Sender: FDA-Public Use
  Company Number: CN-BAYER-2023A013629

PATIENT
  Age: 80 Year
  Sex: Female

DRUGS (2)
  1. ASPIRIN [Suspect]
     Active Substance: ASPIRIN
     Route: 048
  2. AVELOX [Suspect]
     Active Substance: MOXIFLOXACIN HYDROCHLORIDE
     Indication: Pneumonia
     Dosage: UNK
     Route: 048
     Dates: start: 202301

REACTIONS (6)
  - Fracture [Not Recovered/Not Resolved]
  - Pneumonia [Recovering/Resolving]
  - Purpura [Not Recovered/Not Resolved]
  - Productive cough [Not Recovered/Not Resolved]
  - Product physical issue [None]
  - Wrong technique in product usage process [None]

NARRATIVE: CASE EVENT DATE: 20230101
